FAERS Safety Report 22201160 (Version 1)
Quarter: 2023Q2

REPORT INFORMATION
  Report Type: Spontaneous
  Country: US (occurrence: US)
  Receive Date: 20230412
  Receipt Date: 20230412
  Transmission Date: 20230722
  Serious: No
  Sender: FDA-Public Use
  Company Number: US-JNJFOC-20230401975

PATIENT
  Age: 79 Year
  Sex: Male

DRUGS (2)
  1. TYLENOL [Suspect]
     Active Substance: ACETAMINOPHEN
     Indication: Headache
     Route: 065
  2. TYVASO [Concomitant]
     Active Substance: TREPROSTINIL
     Indication: Pulmonary arterial hypertension
     Route: 065
     Dates: start: 2021

REACTIONS (2)
  - Drug intolerance [Unknown]
  - Product use in unapproved indication [Unknown]
